FAERS Safety Report 25844398 (Version 1)
Quarter: 2025Q3

REPORT INFORMATION
  Report Type: Spontaneous
  Country: NZ (occurrence: NZ)
  Receive Date: 20250925
  Receipt Date: 20250925
  Transmission Date: 20251020
  Serious: Yes (Other)
  Sender: RIGEL PHARMACEUTICALS
  Company Number: NZ-ROCHE-10000390454

PATIENT

DRUGS (1)
  1. GAVRETO [Suspect]
     Active Substance: PRALSETINIB
     Indication: Non-small cell lung cancer

REACTIONS (1)
  - Malignant neoplasm progression [Unknown]
